FAERS Safety Report 9916428 (Version 1)
Quarter: 2014Q1

REPORT INFORMATION
  Report Type: Spontaneous
  Country: US (occurrence: None)
  Receive Date: 20140220
  Receipt Date: 20140220
  Transmission Date: 20141002
  Serious: Yes (Life-Threatening, Hospitalization, Disabling, Other)
  Sender: FDA-Public Use
  Company Number: None

PATIENT
  Age: 45 Year
  Sex: Female
  Weight: 88.45 kg

DRUGS (8)
  1. NSAIDS [Suspect]
     Indication: PAIN
  2. NSAIDS [Suspect]
     Indication: POST-TRAUMATIC STRESS DISORDER
  3. LAMICTAL [Suspect]
  4. KLONOPIN [Concomitant]
  5. HYDROXYZINE [Concomitant]
  6. ACYCLOVIR [Concomitant]
  7. STEROIDS [Concomitant]
  8. BENADRYL [Concomitant]

REACTIONS (1)
  - Stevens-Johnson syndrome [None]
